FAERS Safety Report 14597640 (Version 3)
Quarter: 2018Q1

REPORT INFORMATION
  Report Type: Report from Study
  Country: DE (occurrence: DE)
  Receive Date: 20180305
  Receipt Date: 20180320
  Transmission Date: 20180509
  Serious: No
  Sender: FDA-Public Use
  Company Number: DE-ROCHE-2082700

PATIENT
  Age: 57 Year
  Sex: Male

DRUGS (3)
  1. OCREVUS [Suspect]
     Active Substance: OCRELIZUMAB
     Indication: MULTIPLE SCLEROSIS
     Route: 042
     Dates: start: 20180222
  2. BACLOFEN. [Concomitant]
     Active Substance: BACLOFEN
     Dosage: ADMINISTRATION ON ONE DAY EVERY 2 WEEKS
     Route: 065
  3. OCREVUS [Suspect]
     Active Substance: OCRELIZUMAB
     Route: 042
     Dates: start: 20180308

REACTIONS (3)
  - Nasopharyngitis [Recovering/Resolving]
  - Fatigue [Recovered/Resolved]
  - Swelling face [Recovering/Resolving]

NARRATIVE: CASE EVENT DATE: 20180222
